FAERS Safety Report 5336631-4 (Version None)
Quarter: 2007Q2

REPORT INFORMATION
  Report Type: 
  Country: None (occurrence: None)
  Receive Date: 20070524
  Receipt Date: 20070509
  Transmission Date: 20071010
  Serious: Yes (Other)
  Sender: FDA-Public Use
  Company Number: DSA_29943_2007

PATIENT
  Sex: Male

DRUGS (13)
  1. DILTIAZEM HYDROCHLORIDE [Suspect]
     Indication: HEART RATE ABNORMAL
     Dosage: (240 MG QD ORAL)
     Route: 048
     Dates: start: 20070403
  2. DILTIAZEM HYDROCHLORIDE [Suspect]
     Indication: HEART RATE ABNORMAL
     Dosage: (120 MG QD ORAL)
     Route: 048
     Dates: end: 20070402
  3. DOFETILIDE 125 MG [Suspect]
     Indication: ATRIAL FIBRILLATION
     Dosage: (125 MG BID ORAL)
     Route: 048
     Dates: start: 20060201
  4. HYDROCHLOROTHIAZIDE [Concomitant]
  5. IRBESARTAN [Concomitant]
  6. VENLAFAXIINE HCL [Concomitant]
  7. CARVEDILOL [Concomitant]
  8. ACETYLSALICYLIC ACID SRT [Concomitant]
  9. GLIMEPIRIDE [Concomitant]
  10. PANTOPRAZOLE SODIUM [Concomitant]
  11. WARFARIN SODIUM [Concomitant]
  12. IRON [Concomitant]
  13. SELENIUM SULFIDE [Concomitant]

REACTIONS (2)
  - ATRIAL FIBRILLATION [None]
  - CONDITION AGGRAVATED [None]
